FAERS Safety Report 12071580 (Version 1)
Quarter: 2016Q1

REPORT INFORMATION
  Report Type: Report from Study
  Country: US (occurrence: US)
  Receive Date: 20160212
  Receipt Date: 20160212
  Transmission Date: 20160526
  Serious: No
  Sender: FDA-Public Use
  Company Number: US-AMGEN-USASL2016015539

PATIENT
  Age: 47 Year
  Sex: Female

DRUGS (1)
  1. ENBREL [Suspect]
     Active Substance: ETANERCEPT
     Indication: RHEUMATOID ARTHRITIS
     Dosage: 50 MG, QWK
     Route: 065
     Dates: start: 20160105

REACTIONS (9)
  - Fear of disease [Unknown]
  - Injection site pain [Unknown]
  - Sleep disorder [Unknown]
  - Fibromyalgia [Unknown]
  - Rash macular [Unknown]
  - Pain in extremity [Unknown]
  - Throat tightness [Unknown]
  - Choking sensation [Unknown]
  - Pruritus [Unknown]

NARRATIVE: CASE EVENT DATE: 2016
